FAERS Safety Report 6220040-X (Version None)
Quarter: 2009Q2

REPORT INFORMATION
  Report Type: 
  Country: None (occurrence: None)
  Receive Date: 20090609
  Receipt Date: 20090601
  Transmission Date: 20091009
  Serious: Yes (Hospitalization)
  Sender: FDA-Public Use
  Company Number: PHEH2009US05521

PATIENT
  Sex: Male

DRUGS (1)
  1. AFINITOR [Suspect]
     Dosage: 10 MG, UNK
     Route: 048
     Dates: start: 20090510

REACTIONS (3)
  - ARRHYTHMIA [None]
  - BLOOD POTASSIUM INCREASED [None]
  - CREATININE RENAL CLEARANCE INCREASED [None]
